FAERS Safety Report 9056502 (Version 2)
Quarter: 2013Q2

REPORT INFORMATION
  Report Type: Spontaneous
  Country: NO (occurrence: NO)
  Receive Date: 20130204
  Receipt Date: 20130404
  Transmission Date: 20140414
  Serious: Yes (Other)
  Sender: FDA-Public Use
  Company Number: NO-UCBSA-077220

PATIENT
  Age: 56 Year
  Sex: Female

DRUGS (5)
  1. CIMZIA [Suspect]
     Indication: PSORIATIC ARTHROPATHY
     Dates: start: 20110516, end: 201109
  2. CIMZIA [Suspect]
     Indication: PSORIATIC ARTHROPATHY
     Dates: start: 201204, end: 20121030
  3. ENBREL [Suspect]
     Indication: PSORIATIC ARTHROPATHY
     Dates: start: 20120301, end: 20120312
  4. FOSAMAX [Concomitant]
  5. SERETIDE [Concomitant]
     Indication: CHRONIC OBSTRUCTIVE PULMONARY DISEASE

REACTIONS (4)
  - IIIrd nerve paresis [Unknown]
  - Optic neuritis [Unknown]
  - Eyelid ptosis [Not Recovered/Not Resolved]
  - Visual impairment [Not Recovered/Not Resolved]
